FAERS Safety Report 6907891-0 (Version None)
Quarter: 2010Q3

REPORT INFORMATION
  Report Type: 
  Country: None (occurrence: None)
  Receive Date: 20100805
  Receipt Date: 20100723
  Transmission Date: 20110219
  Serious: Yes (Other)
  Sender: FDA-Public Use
  Company Number: PHHY2010DE40789

PATIENT
  Sex: Male

DRUGS (3)
  1. CERTICAN [Suspect]
     Indication: RENAL TRANSPLANT
     Dosage: UNK
     Route: 048
     Dates: start: 20100512, end: 20100606
  2. CERTICAN [Suspect]
     Indication: PROPHYLAXIS AGAINST TRANSPLANT REJECTION
  3. CELLCEPT [Concomitant]

REACTIONS (4)
  - CHOLANGIOLITIS [None]
  - CHOLESTASIS [None]
  - ENDOTHELIAL DYSFUNCTION [None]
  - LIVER TRANSPLANT REJECTION [None]
